FAERS Safety Report 15392308 (Version 2)
Quarter: 2018Q4

REPORT INFORMATION
  Report Type: Spontaneous
  Country: AU (occurrence: AU)
  Receive Date: 20180917
  Receipt Date: 20181004
  Transmission Date: 20190204
  Serious: Yes (Disabling, Other)
  Sender: FDA-Public Use
  Company Number: AU-TERSERA THERAPEUTICS LLC-TSR2014001900

PATIENT

DRUGS (4)
  1. ZOLADEX [Suspect]
     Active Substance: GOSERELIN ACETATE
     Indication: PROSTATE CANCER
     Dosage: 3.6 MILLIGRAM EVERY 3 MONTHS
     Route: 058
     Dates: start: 20090901, end: 2014
  2. ZOLADEX [Suspect]
     Active Substance: GOSERELIN ACETATE
     Dosage: 3.6 MILLIGRAM, UNK
     Route: 058
  3. ZOLADEX [Suspect]
     Active Substance: GOSERELIN ACETATE
     Dosage: 10.8 MILLIGRAM, UNK
     Route: 058
     Dates: start: 20180716, end: 20180914
  4. COSUDEX [Suspect]
     Active Substance: BICALUTAMIDE
     Indication: PROSTATE CANCER
     Dosage: 1 DOSAGE FORM, QD
     Route: 048
     Dates: start: 20180716, end: 20180822

REACTIONS (23)
  - Cognitive disorder [Recovered/Resolved]
  - Anxiety [Recovered/Resolved]
  - Learning disorder [Not Recovered/Not Resolved]
  - Quality of life decreased [Unknown]
  - Asthenia [Unknown]
  - Nephrolithiasis [Unknown]
  - Apathy [Unknown]
  - Weight decreased [Unknown]
  - Urinary incontinence [Not Recovered/Not Resolved]
  - Somnolence [Unknown]
  - Balance disorder [Recovered/Resolved]
  - Confusional state [Recovered/Resolved]
  - Hypophagia [Unknown]
  - Irritability [Unknown]
  - Erectile dysfunction [Not Recovered/Not Resolved]
  - Muscular weakness [Recovering/Resolving]
  - Amnesia [Unknown]
  - Cold sweat [Unknown]
  - Malignant neoplasm progression [Unknown]
  - Lethargy [Recovering/Resolving]
  - Mood altered [Recovered/Resolved]
  - Anal incontinence [Not Recovered/Not Resolved]
  - Anger [Unknown]

NARRATIVE: CASE EVENT DATE: 2018
